APPROVED DRUG PRODUCT: ENTECAVIR
Active Ingredient: ENTECAVIR
Strength: 1MG
Dosage Form/Route: TABLET;ORAL
Application: A206226 | Product #002
Applicant: RISING PHARMA HOLDING INC
Approved: Mar 26, 2019 | RLD: No | RS: No | Type: DISCN